FAERS Safety Report 23342717 (Version 3)
Quarter: 2024Q3

REPORT INFORMATION
  Report Type: Report from Study
  Country: US (occurrence: US)
  Receive Date: 20231227
  Receipt Date: 20240819
  Transmission Date: 20241016
  Serious: Yes (Hospitalization)
  Sender: JOHNSON AND JOHNSON
  Company Number: US-JNJFOC-20231254030

PATIENT

DRUGS (8)
  1. DARATUMUMAB [Suspect]
     Active Substance: DARATUMUMAB
     Indication: Product used for unknown indication
     Route: 058
  2. MONTELUKAST [Concomitant]
     Active Substance: MONTELUKAST SODIUM
     Indication: Premedication
     Dosage: 1 TO 3 H PRIOR TO THE FIRST DOSE OF DARATUMUMAB
     Route: 048
  3. DIPHENHYDRAMINE [Concomitant]
     Active Substance: DIPHENHYDRAMINE
     Indication: Premedication
     Dosage: 1 TO 3 H PRIOR TO EACH DOSE
     Route: 048
  4. ACETAMINOPHEN [Concomitant]
     Active Substance: ACETAMINOPHEN
     Indication: Premedication
     Dosage: 1 TO 3 H PRIOR TO EACH DOSE
     Route: 048
  5. DEXAMETHASONE [Concomitant]
     Active Substance: DEXAMETHASONE
     Indication: Premedication
     Dosage: 1 TO 3 H PRIOR TO THE FIRST 3 DOSES
     Route: 048
  6. DEXAMETHASONE [Concomitant]
     Active Substance: DEXAMETHASONE
     Dosage: 1 TO 3 H PRIOR TO ALL SUBSEQUENT DOSES
     Route: 048
  7. DEXAMETHASONE [Concomitant]
     Active Substance: DEXAMETHASONE
     Dosage: THE DAY AFTER EACH DOSE.
     Route: 048
  8. ACYCLOVIR [Concomitant]
     Active Substance: ACYCLOVIR
     Indication: Herpes zoster reactivation
     Dosage: BEGINNING THE DAY AFTER THE FIRST DOSE AND CONTINUING UNTIL 12 WEEKS AFTER THE?FINAL DOSE.
     Route: 048

REACTIONS (2)
  - COVID-19 pneumonia [Unknown]
  - Injection related reaction [Unknown]
